FAERS Safety Report 6248625-5 (Version None)
Quarter: 2009Q2

REPORT INFORMATION
  Report Type: 
  Country: None (occurrence: None)
  Receive Date: 20090624
  Receipt Date: 20090624
  Transmission Date: 20091009
  Serious: No
  Sender: FDA-Public Use
  Company Number: None

PATIENT
  Age: 33 Year
  Sex: Male
  Weight: 93.7 kg

DRUGS (8)
  1. HEPARIN [Suspect]
     Indication: PROPHYLAXIS
     Dosage: 1000 U/HR IV CI
     Route: 042
     Dates: start: 20090428, end: 20090506
  2. HYDROCORTISONE [Concomitant]
  3. INSULIN [Concomitant]
  4. CASPOFUNGIN VS PLACEBO [Concomitant]
  5. METRONIDAZOLE [Concomitant]
  6. RANITIDINE [Concomitant]
  7. VANCOMYCIN [Concomitant]
  8. FENTANYL-100 [Concomitant]

REACTIONS (1)
  - HEPARIN-INDUCED THROMBOCYTOPENIA [None]
